FAERS Safety Report 5479658-4 (Version None)
Quarter: 2007Q4

REPORT INFORMATION
  Report Type: 
  Country: None (occurrence: None)
  Receive Date: 20071008
  Receipt Date: 20071002
  Transmission Date: 20080405
  Serious: Yes (Life-Threatening, Hospitalization)
  Sender: FDA-Public Use
  Company Number: B0483063A

PATIENT
  Age: 69 Year
  Sex: Female

DRUGS (2)
  1. ROSIGLITAZONE [Suspect]
     Route: 048
     Dates: start: 20060915, end: 20070301
  2. LIPITOR [Concomitant]
     Route: 048
     Dates: end: 20070402

REACTIONS (2)
  - ACUTE MYOCARDIAL INFARCTION [None]
  - CHEST PAIN [None]
